FAERS Safety Report 10221449 (Version 1)
Quarter: 2014Q2

REPORT INFORMATION
  Report Type: Spontaneous
  Country: US (occurrence: None)
  Receive Date: 20140605
  Receipt Date: 20140605
  Transmission Date: 20141212
  Serious: Yes (Other)
  Sender: FDA-Public Use
  Company Number: None

PATIENT
  Age: 56 Year
  Sex: Female
  Weight: 81.19 kg

DRUGS (2)
  1. WARFARIN [Suspect]
     Indication: PULMONARY EMBOLISM
     Dates: start: 20140512
  2. WARFARIN 5MG [Suspect]
     Dates: start: 20140514

REACTIONS (2)
  - International normalised ratio abnormal [None]
  - Prothrombin time abnormal [None]
